FAERS Safety Report 19515294 (Version 2)
Quarter: 2021Q3

REPORT INFORMATION
  Report Type: Spontaneous
  Country: JP (occurrence: JP)
  Receive Date: 20210710
  Receipt Date: 20210901
  Transmission Date: 20211014
  Serious: Yes (Other)
  Sender: FDA-Public Use
  Company Number: JP-ABBVIE-21P-087-3985181-00

PATIENT
  Sex: Male

DRUGS (2)
  1. LEUPLIN SR [Suspect]
     Active Substance: LEUPROLIDE ACETATE
     Indication: PROSTATE CANCER
     Dosage: 12.25 MILLIGRAM, Q3MONTHS
     Route: 050
  2. ZOLADEX [Suspect]
     Active Substance: GOSERELIN ACETATE
     Indication: PRODUCT USED FOR UNKNOWN INDICATION
     Dosage: UNK
     Route: 065

REACTIONS (4)
  - Arterial haemorrhage [Unknown]
  - Injection site haemorrhage [Unknown]
  - Aneurysm [Unknown]
  - Injection site swelling [Unknown]
